FAERS Safety Report 4290287-0 (Version None)
Quarter: 2004Q1

REPORT INFORMATION
  Report Type: 
  Country: None (occurrence: None)
  Receive Date: 20040206
  Receipt Date: 20040206
  Transmission Date: 20041129
  Serious: Yes (Hospitalization)
  Sender: FDA-Public Use
  Company Number: None

PATIENT
  Age: 78 Year
  Sex: Male
  Weight: 78 kg

DRUGS (3)
  1. PRAZOSIN HCL [Suspect]
     Indication: BENIGN PROSTATIC HYPERPLASIA
     Dosage: BID ORAL
     Route: 048
  2. PRAZOSIN HCL [Suspect]
     Indication: BLOOD PRESSURE
     Dosage: BID ORAL
     Route: 048
  3. ATENOLOL [Suspect]
     Dosage: 50 MG QD ORAL
     Route: 048

REACTIONS (3)
  - FALL [None]
  - ORTHOSTATIC HYPOTENSION [None]
  - SYNCOPE [None]
